FAERS Safety Report 11627354 (Version 1)
Quarter: 2015Q4

REPORT INFORMATION
  Report Type: Report from Study
  Country: US (occurrence: US)
  Receive Date: 20151013
  Receipt Date: 20151013
  Transmission Date: 20160304
  Serious: No
  Sender: FDA-Public Use
  Company Number: US-AMGEN-USASL2015013230

PATIENT
  Age: 54 Year
  Sex: Male

DRUGS (38)
  1. VITAMIN B12 [Concomitant]
     Active Substance: CYANOCOBALAMIN
     Dosage: 1000 MCG, UNK
     Route: 058
     Dates: start: 20100601, end: 20100601
  2. VITAMIN B12 [Concomitant]
     Active Substance: CYANOCOBALAMIN
     Dosage: 1000 MCG, UNK
     Route: 030
     Dates: start: 20110428, end: 20110428
  3. ALIMTA [Concomitant]
     Active Substance: PEMETREXED DISODIUM
     Dosage: IN 100CC NS (900 MG)
     Route: 041
     Dates: start: 20100601, end: 20100601
  4. DEXAMETHASONE. [Concomitant]
     Active Substance: DEXAMETHASONE
     Dosage: 20 MG, UNK
     Route: 048
  5. AVASTIN [Suspect]
     Active Substance: BEVACIZUMAB
     Indication: MALIGNANT NEOPLASM OF PLEURA
     Dosage: 400 MG, 1 IN 2 WK
     Route: 042
     Dates: start: 20080513
  6. KYTRIL [Suspect]
     Active Substance: GRANISETRON HYDROCHLORIDE
     Indication: PRODUCT USED FOR UNKNOWN INDICATION
     Dosage: 2 MG, UNK
     Route: 065
  7. EPOETIN ALFA [Concomitant]
     Active Substance: ERYTHROPOIETIN
     Dosage: 40000 UNIT, UNK
     Route: 058
     Dates: start: 20110404, end: 20110404
  8. VITAMIN B12 [Concomitant]
     Active Substance: CYANOCOBALAMIN
     Dosage: 1000 UNK, UNK
     Route: 058
     Dates: start: 20100819, end: 20100819
  9. ALOXI [Concomitant]
     Active Substance: PALONOSETRON HYDROCHLORIDE
     Dosage: 250 MCG, UNK
     Route: 042
     Dates: start: 20100601, end: 20100601
  10. DECADRON [Concomitant]
     Active Substance: DEXAMETHASONE
     Dosage: IN 50 CC NS (10 MG), UNK
     Route: 042
     Dates: start: 20100601, end: 20100601
  11. VITAMIN B12 [Concomitant]
     Active Substance: CYANOCOBALAMIN
     Dosage: 1000 MCG, UNK
     Route: 030
     Dates: start: 20100729, end: 20100729
  12. ALIMTA [Concomitant]
     Active Substance: PEMETREXED DISODIUM
     Dosage: IN 100CC NS (900 MG)
     Route: 042
     Dates: start: 20100729, end: 20100729
  13. ALIMTA [Concomitant]
     Active Substance: PEMETREXED DISODIUM
     Dosage: IN 100CC NS (800 MG)
     Route: 041
     Dates: start: 20110428, end: 20110428
  14. ALIMTA [Concomitant]
     Active Substance: PEMETREXED DISODIUM
     Dosage: IN 100CC NS (900 MG)
     Route: 041
     Dates: start: 20100819, end: 20100819
  15. KYTRIL [Suspect]
     Active Substance: GRANISETRON HYDROCHLORIDE
     Dosage: 1 MG, UNK
     Route: 065
  16. ALOXI [Concomitant]
     Active Substance: PALONOSETRON HYDROCHLORIDE
     Dosage: 250 MCG, UNK
     Route: 042
     Dates: start: 20110404, end: 20110404
  17. VITAMIN B12 [Concomitant]
     Active Substance: CYANOCOBALAMIN
     Dosage: 1000 MCG, UNK
     Route: 030
     Dates: start: 20110404, end: 20110404
  18. CARBOPLATIN. [Concomitant]
     Active Substance: CARBOPLATIN
     Dosage: IN 250 CC NS (400 MG), UNK
     Route: 041
     Dates: start: 20100601, end: 20100601
  19. BENADRYL [Concomitant]
     Active Substance: DIPHENHYDRAMINE HYDROCHLORIDE
     Dosage: 25 MG, UNK
  20. TYLENOL [Concomitant]
     Active Substance: ACETAMINOPHEN
     Dosage: 650 MG, UNK
  21. AVASTIN [Suspect]
     Active Substance: BEVACIZUMAB
     Indication: MESOTHELIOMA
     Dosage: 600 MG, UNK
     Route: 042
     Dates: start: 20080930
  22. ATIVAN [Concomitant]
     Active Substance: LORAZEPAM
     Dosage: 1 MG, UNK
  23. ALOXI [Concomitant]
     Active Substance: PALONOSETRON HYDROCHLORIDE
     Dosage: 250 MCG, UNK
     Route: 042
     Dates: start: 20100729, end: 20100729
  24. ALOXI [Concomitant]
     Active Substance: PALONOSETRON HYDROCHLORIDE
     Dosage: 250 MCG, UNK
     Route: 042
     Dates: start: 20110428, end: 20110428
  25. DEXAMETHASONE. [Concomitant]
     Active Substance: DEXAMETHASONE
     Dosage: 4 MG, 2 IN 1 D
     Route: 048
  26. AMOXICILLIN. [Concomitant]
     Active Substance: AMOXICILLIN
     Dosage: UNK
  27. POTASSIUM CHLORIDE. [Concomitant]
     Active Substance: POTASSIUM CHLORIDE
     Dosage: 20 MCG, UNK
  28. ALIMTA [Concomitant]
     Active Substance: PEMETREXED DISODIUM
     Dosage: IN 100CC NS (800 MG)
     Route: 041
     Dates: start: 20110404, end: 20110404
  29. NAVELBINE [Concomitant]
     Active Substance: VINORELBINE TARTRATE
     Dosage: UNK
  30. MANNITOL. [Concomitant]
     Active Substance: MANNITOL
     Dosage: 50 ML, UNK
     Route: 042
  31. LASIX [Concomitant]
     Active Substance: FUROSEMIDE
     Dosage: 20 MG, UNK
  32. CISPLATIN. [Concomitant]
     Active Substance: CISPLATIN
     Dosage: 40 MG, UNK
  33. ALIMTA [Concomitant]
     Active Substance: PEMETREXED DISODIUM
     Dosage: 1000 MG, UNK
  34. NEUPOGEN [Suspect]
     Active Substance: FILGRASTIM
     Indication: PRODUCT USED FOR UNKNOWN INDICATION
     Dosage: 480 MG, UNK
     Route: 058
  35. EPOETIN ALFA [Concomitant]
     Active Substance: ERYTHROPOIETIN
     Dosage: 40000 UNIT, UNK
     Route: 058
     Dates: start: 20100809, end: 20100809
  36. ARANESP [Concomitant]
     Active Substance: DARBEPOETIN ALFA
     Dosage: 500 MCG, UNK
  37. BENADRYL [Concomitant]
     Active Substance: DIPHENHYDRAMINE HYDROCHLORIDE
     Dosage: 50 MG, UNK
  38. FOLIC ACID. [Concomitant]
     Active Substance: FOLIC ACID
     Dosage: 1 MG, 1 IN 1 D

REACTIONS (14)
  - Off label use [Unknown]
  - Fatigue [Unknown]
  - Headache [Unknown]
  - Pain in extremity [Unknown]
  - Asthenia [Unknown]
  - Nausea [Unknown]
  - Diarrhoea [Unknown]
  - Dyspnoea [Unknown]
  - Chest pain [Unknown]
  - Malaise [Unknown]
  - Back pain [Unknown]
  - Balance disorder [Unknown]
  - Sinusitis [Unknown]
  - Cough [Unknown]
